FAERS Safety Report 10709973 (Version 2)
Quarter: 2015Q1

REPORT INFORMATION
  Report Type: Spontaneous
  Country: US (occurrence: US)
  Receive Date: 20150114
  Receipt Date: 20150303
  Transmission Date: 20150721
  Serious: No
  Sender: FDA-Public Use
  Company Number: US-PFIZER INC-2015011240

PATIENT
  Age: 64 Year
  Sex: Male
  Weight: 108.84 kg

DRUGS (1)
  1. VIAGRA [Suspect]
     Active Substance: SILDENAFIL CITRATE
     Indication: ERECTILE DYSFUNCTION
     Dosage: 100, AS NEEDED
     Dates: start: 2005

REACTIONS (2)
  - Malaise [Unknown]
  - Drug effect incomplete [Unknown]
